FAERS Safety Report 6654373-X (Version None)
Quarter: 2010Q1

REPORT INFORMATION
  Report Type: 
  Country: None (occurrence: None)
  Receive Date: 20100326
  Receipt Date: 20100318
  Transmission Date: 20100710
  Serious: Yes (Other)
  Sender: FDA-Public Use
  Company Number: JP-PFIZER INC-2010017561

PATIENT
  Age: 74 Year
  Sex: Female

DRUGS (2)
  1. LIPITOR [Suspect]
     Indication: DYSLIPIDAEMIA
     Dosage: 5 MG/DAY
     Route: 048
     Dates: start: 20100129, end: 20100205
  2. NORVASC [Concomitant]
     Dosage: UNK
     Route: 048

REACTIONS (2)
  - ABDOMINAL DISCOMFORT [None]
  - CHEST DISCOMFORT [None]
